FAERS Safety Report 5449507-9 (Version None)
Quarter: 2007Q3

REPORT INFORMATION
  Report Type: 
  Country: None (occurrence: None)
  Receive Date: 20070907
  Receipt Date: 20070820
  Transmission Date: 20080115
  Serious: Yes (Death)
  Sender: FDA-Public Use
  Company Number: 6037125

PATIENT
  Age: 36 Year
  Sex: Female

DRUGS (9)
  1. METOCLOPRAMIDE [Suspect]
     Indication: MENTAL DISORDER
  2. VENLAFAXINE HCL [Suspect]
     Indication: MENTAL DISORDER
  3. LEVETIRACETAM [Suspect]
     Indication: CONVULSION
  4. DIAZEPAM [Suspect]
     Indication: CONVULSION
  5. PRIMIDONE [Suspect]
     Indication: CONVULSION
  6. PHENYTOIN [Suspect]
     Indication: CONVULSION
  7. CLONAZEPAM [Suspect]
     Indication: CONVULSION
  8. VALPROIC ACID [Concomitant]
  9. GABAPENTIN [Concomitant]

REACTIONS (20)
  - CARDIOMYOPATHY [None]
  - CATATONIA [None]
  - CEREBRAL HAEMORRHAGE [None]
  - CONVERSION DISORDER [None]
  - CONVULSION [None]
  - DEHYDRATION [None]
  - GLIOSIS [None]
  - HEPATIC NECROSIS [None]
  - HYPERCHLORAEMIA [None]
  - HYPERNATRAEMIA [None]
  - HYPERTENSION [None]
  - MYOCARDIAL INFARCTION [None]
  - NEUROLEPTIC MALIGNANT SYNDROME [None]
  - NO THERAPEUTIC RESPONSE [None]
  - PNEUMONIA [None]
  - PSYCHOMOTOR HYPERACTIVITY [None]
  - RENAL FAILURE ACUTE [None]
  - RENAL TUBULAR NECROSIS [None]
  - RHABDOMYOLYSIS [None]
  - URINE KETONE BODY PRESENT [None]
